FAERS Safety Report 6430732-5 (Version None)
Quarter: 2009Q4

REPORT INFORMATION
  Report Type: 
  Country: None (occurrence: None)
  Receive Date: 20091106
  Receipt Date: 20091028
  Transmission Date: 20100525
  Serious: Yes (Other)
  Sender: FDA-Public Use
  Company Number: JP-JNJFOC-20091101233

PATIENT
  Age: 29 Year
  Sex: Male

DRUGS (2)
  1. REMICADE [Suspect]
     Indication: BEHCET'S SYNDROME
     Dosage: 1 INFUSION RECEIVED
     Route: 042
  2. CYCLOSPORINE [Concomitant]
     Indication: BEHCET'S SYNDROME
     Dosage: 50-100 MG/DAY

REACTIONS (2)
  - DERMATITIS PSORIASIFORM [None]
  - PUSTULAR PSORIASIS [None]
